FAERS Safety Report 24352722 (Version 1)
Quarter: 2024Q3

REPORT INFORMATION
  Report Type: Spontaneous
  Country: CN (occurrence: CN)
  Receive Date: 20240923
  Receipt Date: 20240923
  Transmission Date: 20241016
  Serious: No
  Sender: ROCHE
  Company Number: CN-ROCHE-3430434

PATIENT
  Age: 44 Year
  Sex: Female

DRUGS (2)
  1. HERCEPTIN [Suspect]
     Active Substance: TRASTUZUMAB
     Indication: HER2 positive breast cancer
     Route: 065
  2. PYROTINIB [Concomitant]
     Active Substance: PYROTINIB
     Indication: HER2 positive breast cancer
     Route: 048

REACTIONS (3)
  - Ecchymosis [Unknown]
  - Haemoptysis [Unknown]
  - Irritability [Unknown]
